FAERS Safety Report 20869308 (Version 3)
Quarter: 2022Q3

REPORT INFORMATION
  Report Type: Spontaneous
  Country: JP (occurrence: JP)
  Receive Date: 20220524
  Receipt Date: 20220907
  Transmission Date: 20221027
  Serious: Yes (Other)
  Sender: FDA-Public Use
  Company Number: JP-Eisai-202202167_LEN-EC_P_1

PATIENT
  Age: 69 Year
  Sex: Female

DRUGS (3)
  1. LENVIMA [Suspect]
     Active Substance: LENVATINIB
     Indication: Endometrial cancer
     Route: 048
     Dates: start: 202203, end: 2022
  2. LENVIMA [Suspect]
     Active Substance: LENVATINIB
     Route: 048
     Dates: start: 2022, end: 2022
  3. KEYTRUDA [Suspect]
     Active Substance: PEMBROLIZUMAB
     Indication: Endometrial cancer
     Route: 041
     Dates: start: 202203

REACTIONS (5)
  - Myocarditis [Unknown]
  - Diarrhoea [Unknown]
  - Proteinuria [Unknown]
  - Hypertension [Recovered/Resolved]
  - Faeces soft [Unknown]

NARRATIVE: CASE EVENT DATE: 20220101
